FAERS Safety Report 18797554 (Version 1)
Quarter: 2021Q1

REPORT INFORMATION
  Report Type: Spontaneous
  Country: US (occurrence: US)
  Receive Date: 20210128
  Receipt Date: 20210128
  Transmission Date: 20210419
  Serious: Yes (Other)
  Sender: FDA-Public Use
  Company Number: US-AUROBINDO-AUR-APL-2021-002705

PATIENT
  Age: 14 Year
  Sex: Male

DRUGS (7)
  1. EPINEPHRINE. [Suspect]
     Active Substance: EPINEPHRINE
     Indication: VENTRICULAR FIBRILLATION
     Dosage: 1 MILLIGRAM TOTAL OF  6MG
     Route: 040
  2. AMIODARONE HYDROCHLORIDE. [Suspect]
     Active Substance: AMIODARONE HYDROCHLORIDE
     Indication: VENTRICULAR FIBRILLATION
     Dosage: 300 MILLIGRAM TOTAL OF 600 MG
     Route: 040
  3. VASOPRESSIN. [Suspect]
     Active Substance: VASOPRESSIN
     Indication: VENTRICULAR FIBRILLATION
     Dosage: UNK
     Route: 065
  4. SEVOFLURANE. [Concomitant]
     Active Substance: SEVOFLURANE
     Indication: ANAESTHESIA
     Dosage: UNK
     Route: 065
  5. VECURONIUM [Concomitant]
     Active Substance: VECURONIUM BROMIDE
     Indication: HYPOTONIA
     Dosage: UNK
     Route: 065
  6. FENTANYL. [Concomitant]
     Active Substance: FENTANYL
     Indication: ANAESTHESIA
     Dosage: UNK
     Route: 065
  7. DOBUTAMINE [Suspect]
     Active Substance: DOBUTAMINE HYDROCHLORIDE
     Indication: VENTRICULAR FIBRILLATION
     Dosage: UNK
     Route: 065

REACTIONS (1)
  - Drug ineffective [Unknown]
